FAERS Safety Report 19597304 (Version 1)
Quarter: 2021Q3

REPORT INFORMATION
  Report Type: Spontaneous
  Country: CN (occurrence: CN)
  Receive Date: 20210722
  Receipt Date: 20210722
  Transmission Date: 20211014
  Serious: Yes (Other)
  Sender: FDA-Public Use
  Company Number: CN-ABBVIE-21K-035-4003123-00

PATIENT

DRUGS (1)
  1. IBRUTINIB [Suspect]
     Active Substance: IBRUTINIB
     Indication: PRODUCT USED FOR UNKNOWN INDICATION
     Route: 048

REACTIONS (13)
  - Mental impairment [Unknown]
  - Granulocyte count decreased [Unknown]
  - Tremor [Unknown]
  - Product use in unapproved indication [Unknown]
  - Pneumonia [Unknown]
  - Platelet count decreased [Unknown]
  - Rash [Unknown]
  - Hepatitis B reactivation [Unknown]
  - Cytokine release syndrome [Unknown]
  - Somnolence [Unknown]
  - Dizziness [Unknown]
  - Off label use [Unknown]
  - Hepatitis fulminant [Unknown]
